FAERS Safety Report 8282015-9 (Version None)
Quarter: 2012Q2

REPORT INFORMATION
  Report Type: 
  Country: None (occurrence: None)
  Receive Date: 20120413
  Receipt Date: 20120405
  Transmission Date: 20120825
  Serious: Yes (Hospitalization)
  Sender: FDA-Public Use
  Company Number: US-BAYER-2011-068357

PATIENT
  Age: 21 Year
  Sex: Female
  Weight: 87.982 kg

DRUGS (6)
  1. YASMIN [Suspect]
     Indication: CONTRACEPTION
  2. DROSPIRENONE AND ETHINYL ESTRADIOL [Suspect]
     Indication: CONTRACEPTION
  3. DROSPIRENONE AND ETHINYL ESTRADIOL [Suspect]
     Indication: ACNE
     Dosage: 3-0.03 MG (28 TABLETS)
     Route: 048
     Dates: start: 20060809, end: 20100508
  4. ULTRAM [Concomitant]
     Dosage: 50 MG, EVERY 4-6 HOURS PRN
  5. YASMIN [Suspect]
     Indication: ACNE
     Dosage: 3-0.03 MG (28 TABLETS)
     Route: 048
     Dates: start: 20060809, end: 20100508
  6. VENTOLIN HFA [Concomitant]
     Dosage: 2 PUFF(S) Q4-6 HRS
     Route: 055
     Dates: start: 20090727, end: 20100101

REACTIONS (3)
  - PULMONARY INFARCTION [None]
  - PULMONARY EMBOLISM [None]
  - INJURY [None]
